FAERS Safety Report 9277695 (Version 2)
Quarter: 2013Q2

REPORT INFORMATION
  Report Type: Report from Study
  Country: JP (occurrence: JP)
  Receive Date: 20130508
  Receipt Date: 20130530
  Transmission Date: 20140414
  Serious: Yes (Hospitalization, Other)
  Sender: FDA-Public Use
  Company Number: PHHY2013JP043698

PATIENT
  Age: 82 Year
  Sex: Female

DRUGS (5)
  1. RIVASTIGMIN [Suspect]
     Indication: DEMENTIA ALZHEIMER^S TYPE
     Dosage: 4.5 MG ONCE A DAY
     Route: 062
     Dates: start: 20130126, end: 20130228
  2. RIVASTIGMIN [Suspect]
     Dosage: 9 MG ONCE A DAY
     Route: 062
     Dates: start: 20130301, end: 20130406
  3. TAKEPRON [Concomitant]
     Dosage: UNK UKN, UNK
  4. SYMMETREL [Concomitant]
     Dosage: UNK UKN, UNK
  5. REFLEX//MIRTAZAPINE [Concomitant]

REACTIONS (2)
  - Intestinal obstruction [Not Recovered/Not Resolved]
  - Pneumonia aspiration [Recovered/Resolved with Sequelae]
